FAERS Safety Report 23468015 (Version 1)
Quarter: 2024Q1

REPORT INFORMATION
  Report Type: Spontaneous
  Country: TR (occurrence: TR)
  Receive Date: 20240201
  Receipt Date: 20240201
  Transmission Date: 20240410
  Serious: Yes (Hospitalization)
  Sender: FDA-Public Use
  Company Number: TR-PRINSTON PHARMACEUTICAL INC.-2024PRN00035

PATIENT
  Age: 70 Year
  Sex: Female

DRUGS (1)
  1. FUROSEMIDE [Suspect]
     Active Substance: FUROSEMIDE
     Dosage: BOLUS ON THE DORSUM OF THE LEFT HAND
     Route: 042

REACTIONS (2)
  - Extravasation [Recovered/Resolved]
  - Compartment syndrome [Recovered/Resolved]
